FAERS Safety Report 10190379 (Version 1)
Quarter: 2014Q2

REPORT INFORMATION
  Report Type: Spontaneous
  Country: US (occurrence: US)
  Receive Date: 20140522
  Receipt Date: 20140522
  Transmission Date: 20141212
  Serious: Yes (Other)
  Sender: FDA-Public Use
  Company Number: US-ASTRAZENECA-2014SE35473

PATIENT
  Age: 69 Year
  Sex: Male
  Weight: 81.6 kg

DRUGS (15)
  1. NEXIUM [Suspect]
     Indication: DYSPEPSIA
     Dosage: DAILY
     Route: 048
     Dates: start: 201403, end: 201404
  2. ISOSORBIDE [Suspect]
     Indication: ARTERIAL DISORDER
     Route: 048
     Dates: start: 20140414
  3. OMEPRAZOLE [Suspect]
     Indication: DYSPEPSIA
     Route: 048
     Dates: start: 2012, end: 2013
  4. OMEPRAZOLE [Suspect]
     Indication: DYSPEPSIA
     Route: 048
     Dates: start: 2013
  5. BRILINTA [Suspect]
     Indication: ANTIPLATELET THERAPY
     Route: 048
     Dates: start: 20140422
  6. IRBESARTAN [Concomitant]
     Indication: BLOOD PRESSURE ABNORMAL
  7. SIMVASTATIN [Concomitant]
     Indication: BLOOD CHOLESTEROL ABNORMAL
     Dosage: TEN YEARS AGO OR MAYBE MORE
  8. APRISO [Concomitant]
     Indication: COLITIS
     Dosage: 2-3 YEARS AGO
  9. HYDROCHLOROTHIAZIDE [Concomitant]
  10. FOLIC ACID [Concomitant]
  11. CENTRUM SENIOR MULTIVITAMIN [Concomitant]
  12. VITAMIN D [Concomitant]
     Indication: VITAMIN D DEFICIENCY
     Dosage: ONCE A MONTH SEVERAL MONTHS AGO
  13. VITAMIN B [Concomitant]
     Indication: BONE DISORDER
     Dosage: MONTHLY
  14. VITAMIN B [Concomitant]
     Indication: BONE DISORDER
     Dosage: 1,000 IU OF A VITAMIN B PILL
  15. PANTOPRAZOLE [Concomitant]

REACTIONS (7)
  - Coronary artery thrombosis [Unknown]
  - Dysphagia [Unknown]
  - Chest pain [Unknown]
  - Headache [Unknown]
  - Musculoskeletal pain [Unknown]
  - Drug ineffective [Unknown]
  - Drug dose omission [Unknown]
